FAERS Safety Report 8023436-9 (Version None)
Quarter: 2012Q1

REPORT INFORMATION
  Report Type: 
  Country: None (occurrence: None)
  Receive Date: 20120105
  Receipt Date: 20111229
  Transmission Date: 20120608
  Serious: Yes (Hospitalization)
  Sender: FDA-Public Use
  Company Number: US-BIOGENIDEC-2011BI016424

PATIENT
  Age: 54 Year
  Sex: Female

DRUGS (1)
  1. TYSABRI [Suspect]
     Indication: MULTIPLE SCLEROSIS
     Route: 042
     Dates: start: 20070608, end: 20110125

REACTIONS (13)
  - WEIGHT DECREASED [None]
  - BLOOD PRESSURE INCREASED [None]
  - BALANCE DISORDER [None]
  - PAIN IN EXTREMITY [None]
  - DEPRESSION [None]
  - NAUSEA [None]
  - BACK PAIN [None]
  - MULTIPLE SCLEROSIS RELAPSE [None]
  - FATIGUE [None]
  - BURNING SENSATION [None]
  - MENTAL IMPAIRMENT [None]
  - HEPATIC FAILURE [None]
  - VOMITING [None]
